FAERS Safety Report 8068930-X (Version None)
Quarter: 2012Q1

REPORT INFORMATION
  Report Type: 
  Country: None (occurrence: None)
  Receive Date: 20120118
  Receipt Date: 20120105
  Transmission Date: 20120608
  Serious: Yes (Life-Threatening, Other)
  Sender: FDA-Public Use
  Company Number: 1000026517

PATIENT
  Age: 35 Year
  Sex: Male

DRUGS (10)
  1. WYPAX (LORAZEPAM) (LORAZEPAM) [Concomitant]
  2. KIPRES (MONTELUKAST SODIUM) (MONTELUKAST SODIUM) [Concomitant]
  3. ASMEDIN (CIMETIDINE) (CIMETIDINE) [Concomitant]
  4. LANSOPRAZOLE [Concomitant]
  5. LEXAPRO [Suspect]
     Dosage: 10 MG (10 MG,1 IN 1 D),ORAL
     Route: 048
     Dates: start: 20111116, end: 20111130
  6. DOGMATYL (SULPIRIDE) (SULPIRIDE) [Concomitant]
  7. LEXAPRO [Suspect]
     Dosage: 20 MG (20 MG,1 IN 1 D),ORAL
     Route: 048
     Dates: start: 20111201, end: 20111203
  8. DRUG FOR A HEADACHE (DRUG FOR HEADACHE) (DRUG FOR HEADACHE) [Concomitant]
  9. DEPAS (ETIZOLAM) (ETIZOLAM) [Concomitant]
  10. LEXOTAN (BROMAZEPAM) (BROMAZEPAM) [Concomitant]

REACTIONS (7)
  - PAROSMIA [None]
  - BRADYCARDIA [None]
  - FALL [None]
  - COUGH [None]
  - LOSS OF CONSCIOUSNESS [None]
  - TIC [None]
  - HEADACHE [None]
